FAERS Safety Report 21207309 (Version 1)
Quarter: 2022Q3

REPORT INFORMATION
  Report Type: Spontaneous
  Country: DE (occurrence: DE)
  Receive Date: 20220812
  Receipt Date: 20220812
  Transmission Date: 20221027
  Serious: Yes (Hospitalization)
  Sender: FDA-Public Use
  Company Number: None

PATIENT
  Age: 80 Year
  Sex: Female
  Weight: 70 kg

DRUGS (9)
  1. SPIRONOLACTONE [Suspect]
     Active Substance: SPIRONOLACTONE
     Indication: Hypertension
     Dosage: 50 MILLIGRAM DAILY; 50 MG, QD , THERAPY START DATE : ASKU, ADDITIONAL INFORMATION : ALDACTONE
     Route: 065
     Dates: end: 20180825
  2. MOXONIDINE [Suspect]
     Active Substance: MOXONIDINE
     Indication: Hypertension
     Dosage: .8 MILLIGRAM DAILY; .4 MG , BID , ADDITIONAL INFORMATION : MOXONIDINE, UNIT DOSE : 0.4 MG, FREQUENCY
     Dates: start: 20080730
  3. METOPROLOL SUCCINATE [Suspect]
     Active Substance: METOPROLOL SUCCINATE
     Indication: Hypertension
     Dosage: 190 MILLIGRAM DAILY; 95 MG, BID , THERAPY START DATE : ASKU, THERAPY END DATE : ASKU, FREQUENCY TIME
     Route: 065
  4. METOPROLOL SUCCINATE [Suspect]
     Active Substance: METOPROLOL SUCCINATE
     Dosage: 190 MG, UNK , UNIT DOSE : 190 MG, THERAPY END DATE : ASKU
     Route: 065
     Dates: start: 2008
  5. FELODIPINE [Suspect]
     Active Substance: FELODIPINE
     Indication: Hypertension
     Dosage: 2 DOSAGE FORMS DAILY; 1 DF, BID , THERAPY END DATE : NASK , FREQUENCY TIME : 12 HOURS , ADDITIONAL I
     Route: 065
     Dates: start: 20080730
  6. DIGITOXIN [Concomitant]
     Active Substance: DIGITOXIN
     Indication: Cardiac failure
     Dosage: .07 MILLIGRAM DAILY; .07 MG, QD , THERAPY START DATE : ASKU, THERAPY END DATE : ASKU, ADDITIONAL INF
  7. FERRO-SANOL DUODENAL [Concomitant]
     Active Substance: FERROUS GLYCINE SULFATE
     Indication: Iron deficiency anaemia
     Dosage: 1 DOSAGE FORMS DAILY; 1 DF,QD , THERAPY START DATE : ASKU ,ADDITIONAL INFORMATION : FERRO-SANOL DUOD
  8. FERROUS SULFATE [Concomitant]
     Active Substance: FERROUS SULFATE
     Indication: Iron deficiency anaemia
     Dosage: UNK, UNK, THERAPY START DATE : ASKU, THERAPY END DATE : ASKU
  9. PANTOPRAZOLE [Concomitant]
     Active Substance: PANTOPRAZOLE
     Indication: Gastrooesophageal reflux disease
     Dosage: 40 MILLIGRAM DAILY; 40 MG, QD, THERAPY START DATE : ASKU, THERAPY END DATE : ASKU , ADDITIONAL INFOR

REACTIONS (8)
  - Nausea [Recovered/Resolved]
  - Hyponatraemia [Recovering/Resolving]
  - Syncope [Recovered/Resolved]
  - Heart rate decreased [Recovered/Resolved]
  - Blood pressure systolic decreased [Recovered/Resolved]
  - Listless [Unknown]
  - Hyperkalaemia [Recovered/Resolved]
  - Asthenia [Unknown]

NARRATIVE: CASE EVENT DATE: 20080101
